FAERS Safety Report 5428495-5 (Version None)
Quarter: 2007Q3

REPORT INFORMATION
  Report Type: 
  Country: None (occurrence: None)
  Receive Date: 20070824
  Receipt Date: 20070817
  Transmission Date: 20080115
  Serious: Yes (Hospitalization)
  Sender: FDA-Public Use
  Company Number: 2007-03847

PATIENT
  Age: 47 Year
  Sex: Female

DRUGS (2)
  1. TRELSTAR DEPOT [Suspect]
     Indication: HORMONE THERAPY
     Dosage: 3.75 MG, UNK, INTRAMUSCULAR
     Route: 030
     Dates: start: 20060815, end: 20070703
  2. EXEMESTANE [Concomitant]

REACTIONS (2)
  - CHEST PAIN [None]
  - HOT FLUSH [None]
